FAERS Safety Report 9350911 (Version 2)
Quarter: 2013Q3

REPORT INFORMATION
  Report Type: Report from Study
  Country: US (occurrence: US)
  Receive Date: 20130617
  Receipt Date: 20130729
  Transmission Date: 20140515
  Serious: Yes (Hospitalization, Other)
  Sender: FDA-Public Use
  Company Number: US-ASTELLAS-2013US006228

PATIENT
  Age: 69 Year
  Sex: Female

DRUGS (3)
  1. ERLOTINIB TABLET [Suspect]
     Indication: NON-SMALL CELL LUNG CANCER METASTATIC
     Dosage: 150 MG, UID/QD
     Route: 048
     Dates: start: 20130517, end: 20130607
  2. COUMADIN [Suspect]
     Indication: ATRIAL FIBRILLATION
     Dosage: UNK
     Route: 048
  3. DOXYCYCLINE [Suspect]
     Indication: RASH
     Dosage: 200 MG, BID
     Route: 065

REACTIONS (9)
  - Haemoglobin decreased [Unknown]
  - Prothrombin time prolonged [Unknown]
  - International normalised ratio abnormal [Recovered/Resolved]
  - International normalised ratio increased [Unknown]
  - Haematochezia [Unknown]
  - Rash [Recovering/Resolving]
  - Diarrhoea [Recovering/Resolving]
  - Dry skin [Not Recovered/Not Resolved]
  - Skin exfoliation [Not Recovered/Not Resolved]
